FAERS Safety Report 20338879 (Version 1)
Quarter: 2022Q1

REPORT INFORMATION
  Report Type: Spontaneous
  Country: US (occurrence: None)
  Receive Date: 20220116
  Receipt Date: 20220116
  Transmission Date: 20220424
  Serious: No
  Sender: FDA-Public Use
  Company Number: 2022A013171

PATIENT
  Sex: Female

DRUGS (1)
  1. FASLODEX [Suspect]
     Active Substance: FULVESTRANT
     Dosage: UNKNOWN
     Route: 030

REACTIONS (6)
  - Illness [Unknown]
  - Chills [Unknown]
  - Pain [Unknown]
  - Hypersensitivity [Unknown]
  - Rash [Unknown]
  - Erythema [Unknown]
